FAERS Safety Report 21011346 (Version 1)
Quarter: 2022Q2

REPORT INFORMATION
  Report Type: Spontaneous
  Country: CA (occurrence: CA)
  Receive Date: 20220627
  Receipt Date: 20220627
  Transmission Date: 20220721
  Serious: Yes (Death)
  Sender: FDA-Public Use
  Company Number: CA-ELI_LILLY_AND_COMPANY-CA202206012070

PATIENT
  Age: 24 Year
  Sex: Male

DRUGS (6)
  1. OLANZAPINE [Suspect]
     Active Substance: OLANZAPINE
     Indication: Psychotic symptom
     Dosage: UNK UNK, DAILY
     Route: 065
  2. OLANZAPINE [Suspect]
     Active Substance: OLANZAPINE
     Dosage: 15 MG, DAILY
     Route: 065
  3. ABILIFY MAINTENA [Suspect]
     Active Substance: ARIPIPRAZOLE
     Indication: Psychotic symptom
     Dosage: 400 MG, MONTHLY (1/M)
     Route: 030
  4. ZUCLOPENTHIXOL ACETATE [Suspect]
     Active Substance: ZUCLOPENTHIXOL ACETATE
     Indication: Psychiatric decompensation
     Dosage: UNK UNK, SINGLE
     Route: 065
  5. QUETIAPINE [Suspect]
     Active Substance: QUETIAPINE
     Indication: Insomnia
     Dosage: 100 MG, PRN
     Route: 065
  6. LORAZEPAM [Concomitant]
     Active Substance: LORAZEPAM
     Indication: Product used for unknown indication
     Dosage: UNK UNK, UNKNOWN

REACTIONS (14)
  - Accidental death [Fatal]
  - Acute pulmonary oedema [Fatal]
  - Antipsychotic drug level decreased [Fatal]
  - Agitation [Fatal]
  - Arrhythmia [Fatal]
  - Cardiac failure [Fatal]
  - Iatrogenic injury [Fatal]
  - Paradoxical drug reaction [Fatal]
  - Psychotic disorder [Fatal]
  - Ventricular arrhythmia [Fatal]
  - Therapeutic product effect incomplete [Fatal]
  - Prescribed overdose [Fatal]
  - Inappropriate schedule of product administration [Fatal]
  - Product dose omission issue [Fatal]
